FAERS Safety Report 6154487-7 (Version None)
Quarter: 2009Q2

REPORT INFORMATION
  Report Type: 
  Country: None (occurrence: None)
  Receive Date: 20090414
  Receipt Date: 20090407
  Transmission Date: 20091009
  Serious: Yes (Hospitalization, Other)
  Sender: FDA-Public Use
  Company Number: US-ELI_LILLY_AND_COMPANY-US200904001628

PATIENT
  Sex: Female

DRUGS (11)
  1. HUMULIN 70/30 [Suspect]
     Dosage: 16 U, EACH MORNING
     Dates: start: 20080301
  2. HUMULIN 70/30 [Suspect]
     Dosage: 17 U, EACH MORNING
     Dates: start: 20080301
  3. HUMULIN 70/30 [Suspect]
     Dosage: UNK, EACH EVENING
     Dates: start: 20080301
  4. HUMULIN R [Suspect]
     Dates: start: 19950101, end: 20080301
  5. SOTALOL HYDROCHLORIDE [Concomitant]
     Dosage: 120 MG, UNK
  6. FOLIC ACID [Concomitant]
     Dosage: 1 MG, UNK
  7. ASPIRIN [Concomitant]
     Dosage: 81 MG, UNK
  8. PLAVIX [Concomitant]
     Dosage: 75 MG, UNK
  9. LISINOPRIL [Concomitant]
     Indication: HYPERTENSION
     Dosage: 40 MG, UNK
  10. CENTRUM [Concomitant]
  11. METOPROLOL TARTRATE [Concomitant]
     Dosage: 40 MG, UNK

REACTIONS (9)
  - BLINDNESS UNILATERAL [None]
  - CARDIAC DISORDER [None]
  - CEREBROVASCULAR ACCIDENT [None]
  - EYE DISORDER [None]
  - EYE INFECTION [None]
  - FATIGUE [None]
  - HYPERTENSION [None]
  - ISCHAEMIA [None]
  - VISUAL ACUITY REDUCED [None]
